FAERS Safety Report 25635676 (Version 1)
Quarter: 2025Q3

REPORT INFORMATION
  Report Type: Spontaneous
  Country: US (occurrence: US)
  Receive Date: 20250802
  Receipt Date: 20250802
  Transmission Date: 20251021
  Serious: No
  Sender: DR REDDYS
  Company Number: US-DRL-USA-USA/2025/07/011070

PATIENT
  Age: 18 Year
  Sex: Male

DRUGS (5)
  1. DOXYCYCLINE [Suspect]
     Active Substance: DOXYCYCLINE
     Indication: Sinusitis
     Dates: start: 202403
  2. DOXYCYCLINE [Suspect]
     Active Substance: DOXYCYCLINE
     Dates: start: 202406
  3. AUGMENTIN [Concomitant]
     Active Substance: AMOXICILLIN\CLAVULANATE POTASSIUM
     Indication: Sinusitis
     Dates: start: 202406
  4. PREDNISONE [Concomitant]
     Active Substance: PREDNISONE
     Indication: Sinusitis
     Dates: start: 202406
  5. TOBI [Concomitant]
     Active Substance: TOBRAMYCIN
     Indication: Sinusitis
     Route: 055
     Dates: start: 202306

REACTIONS (1)
  - Drug ineffective for unapproved indication [Unknown]
